FAERS Safety Report 10360783 (Version 1)
Quarter: 2014Q3

REPORT INFORMATION
  Report Type: Spontaneous
  Country: CL (occurrence: CL)
  Receive Date: 20140804
  Receipt Date: 20140804
  Transmission Date: 20150326
  Serious: Yes (Other)
  Sender: FDA-Public Use
  Company Number: CL-PFIZER INC-2014212442

PATIENT
  Age: 84 Year
  Sex: Female

DRUGS (4)
  1. TIMOLOL [Concomitant]
     Active Substance: TIMOLOL
     Indication: VISUAL IMPAIRMENT
  2. XALATAN [Suspect]
     Active Substance: LATANOPROST
     Indication: GLAUCOMA
     Dosage: 1 GTT, 1X/DAY
     Route: 047
     Dates: start: 2009
  3. ASPIRIN ^BAYER^ [Concomitant]
     Active Substance: ASPIRIN
  4. EUTIROX [Concomitant]
     Active Substance: LEVOTHYROXINE SODIUM
     Indication: BLOOD PRESSURE ABNORMAL

REACTIONS (2)
  - Fall [Not Recovered/Not Resolved]
  - Fear [Not Recovered/Not Resolved]
